FAERS Safety Report 5137012-9 (Version None)
Quarter: 2006Q4

REPORT INFORMATION
  Report Type: 
  Country: None (occurrence: None)
  Receive Date: 20061030
  Receipt Date: 20061024
  Transmission Date: 20070319
  Serious: Yes (Death)
  Sender: FDA-Public Use
  Company Number: PHEH2006US13281

PATIENT
  Age: 43 Year
  Sex: Male

DRUGS (12)
  1. AVELOX [Concomitant]
  2. CIPRO [Concomitant]
  3. POTASSIUM ACETATE [Concomitant]
  4. GLUCOPHAGE [Concomitant]
  5. GLUCOTROL [Concomitant]
  6. PRAVACHOL [Concomitant]
  7. ACCUPRIL [Concomitant]
  8. FUROSEMIDE [Concomitant]
  9. PROTONIX [Concomitant]
  10. BACTRIM [Concomitant]
  11. AUGMENTIN                               /SCH/ [Concomitant]
  12. FORADIL [Suspect]

REACTIONS (1)
  - DEATH [None]
